FAERS Safety Report 5910370-0 (Version None)
Quarter: 2008Q4

REPORT INFORMATION
  Report Type: 
  Country: None (occurrence: None)
  Receive Date: 20081007
  Receipt Date: 20080214
  Transmission Date: 20090506
  Serious: Yes (Disabling)
  Sender: FDA-Public Use
  Company Number: US-ASTRAZENECA-2008UW00405

PATIENT
  Age: 52 Year
  Sex: Female
  Weight: 58.1 kg

DRUGS (14)
  1. ARIMIDEX [Suspect]
     Indication: BREAST CANCER
     Route: 048
     Dates: start: 20071226, end: 20080115
  2. FASLODEX [Concomitant]
     Route: 030
     Dates: start: 20080115
  3. BONE STRENGTHENER [Concomitant]
  4. VICODIN [Concomitant]
     Indication: PAIN
     Route: 048
  5. COMPAZINE [Concomitant]
     Indication: NAUSEA
     Route: 048
  6. COMPAZINE [Concomitant]
     Indication: VOMITING
     Route: 048
  7. LORAZEPAM [Concomitant]
     Indication: NAUSEA
     Route: 048
  8. ZOMETA [Concomitant]
  9. MULTI-VITAMIN [Concomitant]
  10. ACIDOPHILUS [Concomitant]
  11. ADRIAMYCIN PFS [Concomitant]
  12. CYTOXAN [Concomitant]
  13. ACETAMINOPHEN AND HYDROCODONE BITARTRATE [Concomitant]
     Indication: PAIN
     Dosage: 5/500 MG
  14. JUICE PLUS FIBRE LIQUID [Concomitant]

REACTIONS (4)
  - ARTHRALGIA [None]
  - BONE PAIN [None]
  - CONSTIPATION [None]
  - TOOTHACHE [None]
